FAERS Safety Report 8074084-6 (Version None)
Quarter: 2012Q1

REPORT INFORMATION
  Report Type: 
  Country: None (occurrence: None)
  Receive Date: 20120119
  Receipt Date: 20120106
  Transmission Date: 20120608
  Serious: Yes (Other)
  Sender: FDA-Public Use
  Company Number: GPV/SAF/12/0022599

PATIENT
  Age: 3 Year
  Sex: Male
  Weight: 15 kg

DRUGS (3)
  1. LAMOTRIGINE [Suspect]
     Indication: CONVULSION
     Dosage: 50 MG, ORAL
     Route: 048
     Dates: start: 20111111
  2. EPITOZ [Concomitant]
  3. VALPROATE SODIUM [Concomitant]

REACTIONS (1)
  - DROP ATTACKS [None]
